FAERS Safety Report 23067686 (Version 1)
Quarter: 2023Q4

REPORT INFORMATION
  Report Type: Other
  Country: GB (occurrence: GB)
  Receive Date: 20231016
  Receipt Date: 20231016
  Transmission Date: 20240110
  Serious: Yes (Other)
  Sender: FDA-Public Use
  Company Number: GB-MHRA-MED-202310081531258630-KWDCH

PATIENT

DRUGS (2)
  1. LACOSAMIDE [Suspect]
     Active Substance: LACOSAMIDE
     Indication: Trigeminal neuralgia
     Dosage: 100 MILLIGRAM, BID
     Route: 065
  2. LACOSAMIDE [Suspect]
     Active Substance: LACOSAMIDE
     Dosage: 300 MILLIGRAM, OD
     Route: 065

REACTIONS (4)
  - Cervical vertebral fracture [Unknown]
  - Fall [Recovering/Resolving]
  - Head injury [Unknown]
  - Somnolence [Unknown]

NARRATIVE: CASE EVENT DATE: 20230815
